FAERS Safety Report 11723619 (Version 2)
Quarter: 2015Q4

REPORT INFORMATION
  Report Type: Spontaneous
  Country: IL (occurrence: IL)
  Receive Date: 20151111
  Receipt Date: 20151209
  Transmission Date: 20160304
  Serious: Yes (Hospitalization)
  Sender: FDA-Public Use
  Company Number: IL-TEVA-606465ISR

PATIENT
  Age: 80 Year
  Sex: Male

DRUGS (6)
  1. CARTIA XT [Concomitant]
     Active Substance: DILTIAZEM HYDROCHLORIDE
  2. CONTROLOC [Concomitant]
     Active Substance: PANTOPRAZOLE SODIUM
  3. VENLAFAXINE TEVA ? 75 MG [Suspect]
     Active Substance: VENLAFAXINE HYDROCHLORIDE
     Indication: DEPRESSION
     Dosage: 75 MILLIGRAM DAILY; 75MG
     Route: 048
     Dates: start: 201508
  4. MIRO [Concomitant]
  5. COLCHICINE. [Concomitant]
     Active Substance: COLCHICINE
  6. STATOR [Concomitant]

REACTIONS (4)
  - Burning sensation [Not Recovered/Not Resolved]
  - Glossodynia [Not Recovered/Not Resolved]
  - Swollen tongue [Not Recovered/Not Resolved]
  - Tongue discolouration [Not Recovered/Not Resolved]

NARRATIVE: CASE EVENT DATE: 201510
